FAERS Safety Report 10510535 (Version 13)
Quarter: 2015Q2

REPORT INFORMATION
  Report Type: Report from Study
  Country: CA (occurrence: CA)
  Receive Date: 20141010
  Receipt Date: 20150410
  Transmission Date: 20150821
  Serious: Yes (Hospitalization, Other)
  Sender: FDA-Public Use
  Company Number: CA-ROCHE-1472119

PATIENT
  Age: 71 Year
  Sex: Female
  Weight: 44 kg

DRUGS (16)
  1. PERJETA [Suspect]
     Active Substance: PERTUZUMAB
     Indication: BREAST CANCER
     Route: 042
     Dates: start: 20141106
  2. PERJETA [Suspect]
     Active Substance: PERTUZUMAB
     Indication: METASTATIC NEOPLASM
     Route: 042
     Dates: start: 20141127, end: 20150219
  3. HERCEPTIN [Suspect]
     Active Substance: TRASTUZUMAB
     Indication: METASTATIC NEOPLASM
     Route: 042
     Dates: start: 2014, end: 201503
  4. TAXOL [Suspect]
     Active Substance: PACLITAXEL
     Indication: METASTATIC NEOPLASM
     Route: 042
     Dates: start: 201411, end: 201503
  5. BISOPROLOL [Concomitant]
     Active Substance: BISOPROLOL
  6. ATORVASTATIN [Concomitant]
     Active Substance: ATORVASTATIN
  7. FRAGMIN [Concomitant]
     Active Substance: DALTEPARIN SODIUM
     Route: 058
     Dates: start: 20141028, end: 20141127
  8. HERCEPTIN [Suspect]
     Active Substance: TRASTUZUMAB
     Indication: BREAST CANCER
     Route: 042
     Dates: start: 20140301, end: 20141006
  9. HYDROCHLOROTHIAZIDE. [Concomitant]
     Active Substance: HYDROCHLOROTHIAZIDE
     Route: 065
     Dates: end: 20150104
  10. HYDROMORPHONE [Concomitant]
     Active Substance: HYDROMORPHONE
  11. PANTOPRAZOLE [Concomitant]
     Active Substance: PANTOPRAZOLE SODIUM
  12. FEMARA [Concomitant]
     Active Substance: LETROZOLE
  13. RAMIPRIL. [Concomitant]
     Active Substance: RAMIPRIL
     Route: 065
     Dates: end: 20150104
  14. AMLODIPINE [Concomitant]
     Active Substance: AMLODIPINE BESYLATE
     Route: 065
     Dates: end: 20150104
  15. PROCHLORAZINE [Concomitant]
  16. APO-NAPROXEN [Concomitant]
     Route: 065
     Dates: end: 20150104

REACTIONS (14)
  - Deep vein thrombosis [Unknown]
  - Hypotension [Recovered/Resolved]
  - Blood potassium decreased [Unknown]
  - Thrombosis [Unknown]
  - Malignant neoplasm progression [Unknown]
  - Weight decreased [Not Recovered/Not Resolved]
  - Diarrhoea [Unknown]
  - Urinary tract infection [Unknown]
  - Blood pressure increased [Recovered/Resolved]
  - Pain [Unknown]
  - Fall [Unknown]
  - Uterine disorder [Unknown]
  - Loss of consciousness [Recovered/Resolved]
  - Dyspnoea [Unknown]

NARRATIVE: CASE EVENT DATE: 20141127
